FAERS Safety Report 4325848-3 (Version None)
Quarter: 2004Q1

REPORT INFORMATION
  Report Type: 
  Country: None (occurrence: None)
  Receive Date: 20040323
  Receipt Date: 20040223
  Transmission Date: 20041129
  Serious: Yes (Death)
  Sender: FDA-Public Use
  Company Number: SX02010027

PATIENT
  Age: 4 Month
  Sex: Female
  Weight: 6.3 kg

DRUGS (5)
  1. XOPENEX [Suspect]
     Indication: PNEUMONIA
     Dosage: .63MG/ML INHALATION
     Dates: start: 20011015, end: 20011024
  2. BIAXIN [Concomitant]
  3. RHINOCORT [Concomitant]
  4. REGLAN [Concomitant]
  5. ZANTAC [Concomitant]

REACTIONS (2)
  - ASPIRATION [None]
  - CHOKING [None]
